FAERS Safety Report 4658882-4 (Version None)
Quarter: 2005Q2

REPORT INFORMATION
  Report Type: 
  Country: None (occurrence: None)
  Receive Date: 20050509
  Receipt Date: 20050425
  Transmission Date: 20051028
  Serious: Yes (Hospitalization)
  Sender: FDA-Public Use
  Company Number: WAES 00061042

PATIENT
  Age: 76 Year
  Sex: Male

DRUGS (5)
  1. NAPROXEN [Suspect]
     Indication: DEMENTIA ALZHEIMER'S TYPE
     Dosage: 200 MG/BID/PO
     Route: 048
     Dates: start: 20000229, end: 20000515
  2. PLACEBO [Suspect]
     Indication: DEMENTIA ALZHEIMER'S TYPE
     Dosage: PO
     Route: 048
     Dates: start: 20000229, end: 20000515
  3. ARICEPT [Concomitant]
  4. VITAMIN E [Concomitant]
  5. VITAMINS [Concomitant]

REACTIONS (2)
  - GASTRIC ULCER [None]
  - GASTROINTESTINAL HAEMORRHAGE [None]
